FAERS Safety Report 25288198 (Version 2)
Quarter: 2025Q2

REPORT INFORMATION
  Report Type: Spontaneous
  Country: CZ (occurrence: CZ)
  Receive Date: 20250509
  Receipt Date: 20250528
  Transmission Date: 20250717
  Serious: Yes (Death, Other)
  Sender: SANOFI AVENTIS
  Company Number: CZ-EMA-DD-20250428-7482691-100255

PATIENT
  Sex: Male

DRUGS (3)
  1. ROSUVASTATIN [Suspect]
     Active Substance: ROSUVASTATIN
  2. ASPIRIN [Suspect]
     Active Substance: ASPIRIN
  3. CLOPIDOGREL BISULFATE [Suspect]
     Active Substance: CLOPIDOGREL BISULFATE

REACTIONS (6)
  - Myocardial rupture [Fatal]
  - Myocardial necrosis [Fatal]
  - Vascular stent thrombosis [Fatal]
  - Acute myocardial infarction [Fatal]
  - Pericardial haemorrhage [Fatal]
  - Treatment noncompliance [Fatal]
